FAERS Safety Report 15311944 (Version 3)
Quarter: 2018Q4

REPORT INFORMATION
  Report Type: Spontaneous
  Country: US (occurrence: US)
  Receive Date: 20180823
  Receipt Date: 20181016
  Transmission Date: 20190204
  Serious: No
  Sender: FDA-Public Use
  Company Number: US-CELGENEUS-USA-20180806117

PATIENT
  Sex: Female

DRUGS (1)
  1. OTEZLA [Suspect]
     Active Substance: APREMILAST
     Indication: PSORIASIS
     Dosage: 60 MILLIGRAM
     Route: 048
     Dates: start: 20161101

REACTIONS (4)
  - Psoriasis [Unknown]
  - Pruritus [Unknown]
  - Pain [Unknown]
  - Product dose omission [Unknown]
